FAERS Safety Report 16722812 (Version 5)
Quarter: 2019Q4

REPORT INFORMATION
  Report Type: Report from Study
  Country: None (occurrence: JP)
  Receive Date: 20190821
  Receipt Date: 20191105
  Transmission Date: 20200122
  Serious: Yes (Hospitalization)
  Sender: FDA-Public Use
  Company Number: JP-ABBVIE-19K-087-2843598-00

PATIENT
  Age: 56 Year
  Sex: Male
  Weight: 68 kg

DRUGS (10)
  1. DUODOPA [Suspect]
     Active Substance: CARBIDOPA\LEVODOPA
     Dosage: MD: 8 ML CD: 4.7 ML/HR ? 16 HRS ED: 1.4 ML/UNIT ? 3 TIMES
     Route: 050
     Dates: start: 20190615, end: 20190617
  2. DUODOPA [Suspect]
     Active Substance: CARBIDOPA\LEVODOPA
     Dosage: MD: 10 ML CD: 4.9 ML/HR ? 16 HRS ED: 1.4 ML/UNIT ? 3 TIMES
     Route: 050
     Dates: start: 20190617, end: 20190627
  3. CARBIDOPA HYDRATE W/LEVODOPA [Concomitant]
     Route: 048
  4. CARBIDOPA HYDRATE W/LEVODOPA [Concomitant]
     Indication: PARKINSON^S DISEASE
     Route: 048
  5. DUODOPA [Suspect]
     Active Substance: CARBIDOPA\LEVODOPA
     Dosage: DUODOPA DOSE INCREASED
     Route: 050
     Dates: start: 201909
  6. ENTACAPONE. [Concomitant]
     Active Substance: ENTACAPONE
     Indication: PARKINSON^S DISEASE
     Route: 048
  7. DUODOPA [Suspect]
     Active Substance: CARBIDOPA\LEVODOPA
     Dosage: MD: 8 ML CD: 4.3 ML/HR ? 16 HRS ED: 1.2 ML/UNIT ? 3 TIMES
     Route: 050
     Dates: start: 20190611, end: 20190615
  8. CARBIDOPA HYDRATE W/LEVODOPA [Concomitant]
     Route: 048
     Dates: start: 20190627, end: 20190808
  9. DUODOPA [Suspect]
     Active Substance: CARBIDOPA\LEVODOPA
     Indication: PARKINSON^S DISEASE
     Dosage: MD: 13 ML CD: 3.9 ML/HR ? 16 HRS
     Route: 050
     Dates: start: 20190610, end: 20190611
  10. DUODOPA [Suspect]
     Active Substance: CARBIDOPA\LEVODOPA
     Dosage: MD: 13 ML CD: 4.9 ML/HR ? 16 HRS ED: 1.3 ML/UNIT ? 3 TIMES
     Route: 050
     Dates: start: 20190808, end: 201909

REACTIONS (4)
  - Abdominal discomfort [Recovered/Resolved]
  - Malaise [Unknown]
  - Pneumonia aspiration [Recovered/Resolved]
  - Medical device site ulcer [Recovered/Resolved]

NARRATIVE: CASE EVENT DATE: 2019
